FAERS Safety Report 24056573 (Version 1)
Quarter: 2024Q3

REPORT INFORMATION
  Report Type: Spontaneous
  Country: US (occurrence: US)
  Receive Date: 20240705
  Receipt Date: 20240705
  Transmission Date: 20241017
  Serious: Yes (Other)
  Sender: MAYNE
  Company Number: US-MAYNE PHARMA-2024MYN000259

PATIENT

DRUGS (5)
  1. TOLSURA [Suspect]
     Active Substance: ITRACONAZOLE
     Indication: Coccidioidomycosis
     Dosage: 200 MG, BID
     Route: 065
  2. TOLSURA [Suspect]
     Active Substance: ITRACONAZOLE
     Indication: Pneumonia
     Dosage: 100 MG, BID
     Route: 065
  3. METHYLPREDNISOLONE [Suspect]
     Active Substance: METHYLPREDNISOLONE
     Indication: Coccidioidomycosis
     Dosage: UNK
     Route: 042
  4. METHYLPREDNISOLONE [Suspect]
     Active Substance: METHYLPREDNISOLONE
     Indication: Pneumonia
     Dosage: 60 MG, QD
     Route: 065
  5. PREDNISONE [Suspect]
     Active Substance: PREDNISONE
     Indication: Product used for unknown indication
     Route: 048

REACTIONS (3)
  - Liver function test increased [Recovering/Resolving]
  - Eosinophilia [Unknown]
  - Off label use [Unknown]
